FAERS Safety Report 25139628 (Version 1)
Quarter: 2025Q1

REPORT INFORMATION
  Report Type: Spontaneous
  Country: FR (occurrence: FR)
  Receive Date: 20250331
  Receipt Date: 20250331
  Transmission Date: 20250408
  Serious: Yes (Hospitalization)
  Sender: BANNER
  Company Number: None

PATIENT
  Age: 58 Year
  Sex: Female

DRUGS (1)
  1. IBUPROFEN [Suspect]
     Active Substance: IBUPROFEN
     Indication: Influenza like illness
     Route: 048
     Dates: start: 20250129, end: 20250202

REACTIONS (1)
  - Superinfection bacterial [Recovering/Resolving]

NARRATIVE: CASE EVENT DATE: 20250207
